FAERS Safety Report 11885543 (Version 1)
Quarter: 2016Q1

REPORT INFORMATION
  Report Type: Spontaneous
  Country: GB (occurrence: GB)
  Receive Date: 20160104
  Receipt Date: 20160104
  Transmission Date: 20160526
  Serious: Yes (Other)
  Sender: FDA-Public Use
  Company Number: GB-PFIZER INC-2015472359

PATIENT
  Age: 77 Year
  Sex: Male
  Weight: 90 kg

DRUGS (19)
  1. ASPIRIN (E.C.) [Concomitant]
     Active Substance: ASPIRIN
     Dosage: 1 DF, 1X/DAY
     Dates: start: 20150728
  2. CINNARIZINE [Concomitant]
     Active Substance: CINNARIZINE
     Dosage: 1 DF, 3X/DAY
     Dates: start: 20150728
  3. LACTULOSE. [Concomitant]
     Active Substance: LACTULOSE
     Indication: CONSTIPATION PROPHYLAXIS
     Dosage: 15 ML, 2X/DAY
     Dates: start: 20150728
  4. OMEPRAZOLE. [Concomitant]
     Active Substance: OMEPRAZOLE
     Dosage: 1 DF, 2X/DAY
     Dates: start: 20150728
  5. QUININE [Concomitant]
     Active Substance: QUININE
     Indication: MUSCLE SPASMS
     Dosage: AT NIGHT TO HELP PREVENT CRAMP
     Dates: start: 20150728
  6. SIMVASTATIN. [Concomitant]
     Active Substance: SIMVASTATIN
     Indication: BLOOD CHOLESTEROL INCREASED
     Dosage: AT NIGHT
     Dates: start: 20150728
  7. DAKTACORT [Concomitant]
     Active Substance: HYDROCORTISONE\MICONAZOLE NITRATE
     Dosage: UNK, 2X/DAY
     Dates: start: 20150925, end: 20151009
  8. RANITIDINE [Concomitant]
     Active Substance: RANITIDINE\RANITIDINE HYDROCHLORIDE
     Dosage: 1 DF, 2X/DAY
     Dates: start: 20150918, end: 20151201
  9. DIPYRIDAMOLE. [Concomitant]
     Active Substance: DIPYRIDAMOLE
     Dosage: 1 DF, 2X/DAY
     Dates: start: 20150728
  10. DOXAZOSIN [Concomitant]
     Active Substance: DOXAZOSIN\DOXAZOSIN MESYLATE
     Dates: start: 20151117
  11. IBUPROFEN. [Concomitant]
     Active Substance: IBUPROFEN
     Dosage: UNK, 3X/DAY
     Dates: start: 20150728
  12. ATENOLOL. [Concomitant]
     Active Substance: ATENOLOL
     Dosage: 1 DF, 1X/DAY
     Dates: start: 20150728
  13. SOLIFENACIN [Concomitant]
     Active Substance: SOLIFENACIN
     Dosage: 1 DF, 1X/DAY
     Dates: start: 20150728
  14. BETAHISTINE [Concomitant]
     Active Substance: BETAHISTINE
     Dosage: TAKE ONE 3 TIMES/DAY
     Dates: start: 20151002, end: 20151030
  15. CALCIUM CARBONATE. [Concomitant]
     Active Substance: CALCIUM CARBONATE
     Dosage: 1 DF, 2X/DAY
     Dates: start: 20150804
  16. COCODAMOL [Concomitant]
     Active Substance: ACETAMINOPHEN\CODEINE PHOSPHATE
     Dosage: 1 OR 2 DF FOUR TIMES/DAY
     Dates: start: 20150728
  17. AMLODIPINE BESILATE [Suspect]
     Active Substance: AMLODIPINE BESYLATE
     Dates: start: 20150918
  18. ALENDRONIC ACID [Concomitant]
     Active Substance: ALENDRONIC ACID
     Dosage: 1 DF, WEEKLY
     Dates: start: 20150804, end: 20151207
  19. ZEROCREAM [Concomitant]
     Dosage: USE AS DIRECTED
     Dates: start: 20150925, end: 20151023

REACTIONS (4)
  - Malaise [Unknown]
  - Drug intolerance [Unknown]
  - Asthenia [Unknown]
  - Lethargy [Recovered/Resolved]

NARRATIVE: CASE EVENT DATE: 20151217
